FAERS Safety Report 5684071-0 (Version None)
Quarter: 2008Q1

REPORT INFORMATION
  Report Type: 
  Country: None (occurrence: None)
  Receive Date: 20080328
  Receipt Date: 20070328
  Transmission Date: 20080703
  Serious: No
  Sender: FDA-Public Use
  Company Number: US-AMGEN-KDL217341

PATIENT
  Sex: Female
  Weight: 56.8 kg

DRUGS (2)
  1. NEULASTA [Suspect]
     Indication: CHEMOTHERAPY
     Route: 058
     Dates: start: 20070201
  2. COMPAZINE [Concomitant]

REACTIONS (5)
  - BONE PAIN [None]
  - DYSPEPSIA [None]
  - INFLUENZA LIKE ILLNESS [None]
  - LETHARGY [None]
  - MYALGIA [None]
